FAERS Safety Report 12847442 (Version 1)
Quarter: 2016Q4

REPORT INFORMATION
  Report Type: Spontaneous
  Country: IN (occurrence: IN)
  Receive Date: 20161014
  Receipt Date: 20161014
  Transmission Date: 20170207
  Serious: Yes (Other)
  Sender: FDA-Public Use
  Company Number: IN-PFIZER INC-2016466382

PATIENT

DRUGS (1)
  1. CRIZALK [Suspect]
     Active Substance: CRIZOTINIB
     Dosage: 250 MG, UNK

REACTIONS (2)
  - Deep vein thrombosis [Unknown]
  - Peripheral swelling [Unknown]
